FAERS Safety Report 5515544-9 (Version None)
Quarter: 2007Q4

REPORT INFORMATION
  Report Type: 
  Country: None (occurrence: None)
  Receive Date: 20071113
  Receipt Date: 20070327
  Transmission Date: 20080405
  Serious: No
  Sender: FDA-Public Use
  Company Number: A0644818A

PATIENT
  Age: 75 Year
  Sex: Female

DRUGS (5)
  1. COREG [Suspect]
     Indication: HYPERTENSION
     Dosage: 25MG TWICE PER DAY
     Route: 048
     Dates: start: 20060601
  2. ALPRAZOLAM [Concomitant]
  3. LISINOPRIL [Concomitant]
  4. THYROID TAB [Concomitant]
  5. BLOOD THINNER [Concomitant]

REACTIONS (1)
  - BLOOD PRESSURE INCREASED [None]
